FAERS Safety Report 7396152-4 (Version None)
Quarter: 2011Q1

REPORT INFORMATION
  Report Type: 
  Country: None (occurrence: None)
  Receive Date: 20110301
  Receipt Date: 20101115
  Transmission Date: 20110831
  Serious: Yes (Other)
  Sender: FDA-Public Use
  Company Number: 2211100-US-JNJFOC-20101107019

PATIENT
  Age: 75 Year
  Sex: Male
  Weight: 67.1324 kg

DRUGS (1)
  1. IBUPROFEN [Suspect]
     Indication: PAIN

REACTIONS (1)
  - GASTRIC ULCER HAEMORRHAGE [None]
